FAERS Safety Report 16720258 (Version 1)
Quarter: 2019Q3

REPORT INFORMATION
  Report Type: Spontaneous
  Country: RU (occurrence: US)
  Receive Date: 20190820
  Receipt Date: 20190820
  Transmission Date: 20191005
  Serious: Yes (Death, Other)
  Sender: FDA-Public Use
  Company Number: RU-PFIZER INC-2019355062

PATIENT
  Age: 43 Year
  Sex: Male

DRUGS (5)
  1. AMBRISENTAN [Suspect]
     Active Substance: AMBRISENTAN
     Dosage: UNK
  2. VEROSPIRON [Suspect]
     Active Substance: SPIRONOLACTONE
     Dosage: UNK
  3. REVATIO [Suspect]
     Active Substance: SILDENAFIL CITRATE
     Dosage: UNK
  4. FERRUM LEK [DEXTRIFERRON] [Suspect]
     Active Substance: DEXTRIFERRON
     Dosage: UNK
  5. DIUVER [Suspect]
     Active Substance: TORSEMIDE
     Dosage: UNK

REACTIONS (7)
  - Cardiac failure congestive [Unknown]
  - Product availability issue [Unknown]
  - Tricuspid valve disease [Unknown]
  - Death [Fatal]
  - Cardiac failure chronic [Unknown]
  - Pulmonary hypertension [Unknown]
  - Pericarditis [Unknown]
